FAERS Safety Report 16918721 (Version 1)
Quarter: 2019Q4

REPORT INFORMATION
  Report Type: Spontaneous
  Country: US (occurrence: US)
  Receive Date: 20191015
  Receipt Date: 20191015
  Transmission Date: 20200122
  Serious: No
  Sender: FDA-Public Use
  Company Number: US-BIOGEN-2019BI00795922

PATIENT
  Sex: Female

DRUGS (1)
  1. TECFIDERA [Suspect]
     Active Substance: DIMETHYL FUMARATE
     Indication: MULTIPLE SCLEROSIS
     Route: 048
     Dates: start: 20191009

REACTIONS (10)
  - Musculoskeletal disorder [Unknown]
  - Headache [Unknown]
  - Neck pain [Unknown]
  - Abdominal pain upper [Unknown]
  - Nausea [Unknown]
  - Paraesthesia [Unknown]
  - Swelling face [Unknown]
  - Myalgia [Unknown]
  - Gait disturbance [Unknown]
  - Back pain [Unknown]
